FAERS Safety Report 5525364-7 (Version None)
Quarter: 2007Q4

REPORT INFORMATION
  Report Type: 
  Country: None (occurrence: None)
  Receive Date: 20071120
  Receipt Date: 20070913
  Transmission Date: 20080405
  Serious: No
  Sender: FDA-Public Use
  Company Number: US-1164242

PATIENT
  Age: 75 Year
  Sex: Female
  Weight: 51.2565 kg

DRUGS (7)
  1. NEVANAC [Suspect]
     Indication: PROPHYLAXIS
     Dosage: OPHTHALMIC
     Route: 047
     Dates: start: 20070818, end: 20070924
  2. ECONOPRED PLUS [Suspect]
     Dosage: OPHTHALMIC
     Route: 047
  3. NORVASC [Concomitant]
  4. PRILOSEC [Concomitant]
  5. AVALIDE [Concomitant]
  6. ASPIRIN [Concomitant]
  7. INDERAL [Concomitant]

REACTIONS (2)
  - DRY EYE [None]
  - EYE IRRITATION [None]
